FAERS Safety Report 10237051 (Version 3)
Quarter: 2014Q3

REPORT INFORMATION
  Report Type: Report from Study
  Country: US (occurrence: US)
  Receive Date: 20140613
  Receipt Date: 20140707
  Transmission Date: 20150326
  Serious: Yes (Death, Hospitalization)
  Sender: FDA-Public Use
  Company Number: US-ACTELION-A-NJ2014-099527

PATIENT
  Age: 14 Year
  Sex: Female

DRUGS (7)
  1. MACITENTAN [Suspect]
     Active Substance: MACITENTAN
     Dosage: 10 MG, QOD
     Route: 048
     Dates: end: 20140531
  2. TYVASO [Concomitant]
     Active Substance: TREPROSTINIL
  3. DIGOXIN. [Concomitant]
     Active Substance: DIGOXIN
  4. DIURIL [Concomitant]
     Active Substance: CHLOROTHIAZIDE
  5. BUMEX [Concomitant]
     Active Substance: BUMETANIDE
  6. ADCIRCA [Concomitant]
     Active Substance: TADALAFIL
  7. MACITENTAN [Suspect]
     Active Substance: MACITENTAN
     Indication: HEREDITARY HAEMORRHAGIC TELANGIECTASIA
     Dosage: 10 MG, QD
     Route: 048
     Dates: start: 201312

REACTIONS (4)
  - Transplant evaluation [Unknown]
  - Disease progression [Fatal]
  - Pulmonary arterial hypertension [Fatal]
  - Fluid retention [Recovering/Resolving]

NARRATIVE: CASE EVENT DATE: 20140502
